FAERS Safety Report 9184399 (Version 1)
Quarter: 2012Q4

REPORT INFORMATION
  Report Type: 
  Country: US (occurrence: US)
  Receive Date: 20121101
  Receipt Date: 20121101
  Transmission Date: 20130627
  Serious: No
  Sender: FDA-Public Use
  Company Number: US-PFIZER INC-2012271236

PATIENT
  Sex: Male

DRUGS (2)
  1. LYRICA [Suspect]
     Dosage: 300 mg, 3x/day
  2. LYRICA [Suspect]
     Dosage: cut his dose down to 50 mg

REACTIONS (2)
  - Pain [Unknown]
  - Incorrect dose administered [Unknown]
